FAERS Safety Report 13382302 (Version 1)
Quarter: 2017Q1

REPORT INFORMATION
  Report Type: Spontaneous
  Country: CR (occurrence: CR)
  Receive Date: 20170329
  Receipt Date: 20170329
  Transmission Date: 20170429
  Serious: Yes (Other)
  Sender: FDA-Public Use
  Company Number: CR-PFIZER INC-2017129800

PATIENT
  Age: 31 Year
  Sex: Female

DRUGS (1)
  1. ALTRULINE [Suspect]
     Active Substance: SERTRALINE HYDROCHLORIDE
     Dosage: UNK

REACTIONS (4)
  - Anxiety [Unknown]
  - Obstructive airways disorder [Unknown]
  - Burning sensation [Unknown]
  - Nausea [Unknown]
